FAERS Safety Report 19806387 (Version 3)
Quarter: 2024Q1

REPORT INFORMATION
  Report Type: Spontaneous
  Country: US (occurrence: US)
  Receive Date: 20210909
  Receipt Date: 20240116
  Transmission Date: 20240410
  Serious: Yes (Disabling, Other)
  Sender: FDA-Public Use
  Company Number: US-ORGANON-O2108USA002443

PATIENT
  Age: 59 Year
  Sex: Female

DRUGS (2)
  1. ZOCOR [Suspect]
     Active Substance: SIMVASTATIN
     Indication: Blood cholesterol increased
     Dosage: UNK
     Route: 048
  2. ZOCOR [Suspect]
     Active Substance: SIMVASTATIN
     Dosage: UNK
     Route: 048

REACTIONS (12)
  - Cerebral haemorrhage [Recovering/Resolving]
  - Intracranial aneurysm [Recovering/Resolving]
  - Coma [Recovered/Resolved]
  - Arteriovenous malformation [Recovering/Resolving]
  - Cerebral vasoconstriction [Unknown]
  - Embolism [Unknown]
  - Pneumonia [Unknown]
  - Optic nerve injury [Unknown]
  - Migraine with aura [Unknown]
  - Post procedural complication [Not Recovered/Not Resolved]
  - Cognitive disorder [Not Recovered/Not Resolved]
  - Nervous system disorder [Unknown]

NARRATIVE: CASE EVENT DATE: 20100101
